FAERS Safety Report 5498005-5 (Version None)
Quarter: 2007Q4

REPORT INFORMATION
  Report Type: 
  Country: None (occurrence: None)
  Receive Date: 20071025
  Receipt Date: 20071015
  Transmission Date: 20080405
  Serious: Yes (Other)
  Sender: FDA-Public Use
  Company Number: US-PFIZER INC-2007044049

PATIENT
  Sex: Female
  Weight: 114.3 kg

DRUGS (1)
  1. CELEBREX [Suspect]
     Dates: start: 20010101, end: 20040118

REACTIONS (2)
  - CARDIOVASCULAR DISORDER [None]
  - CEREBROVASCULAR ACCIDENT [None]
